FAERS Safety Report 12953460 (Version 7)
Quarter: 2017Q2

REPORT INFORMATION
  Report Type: Spontaneous
  Country: US (occurrence: US)
  Receive Date: 20161118
  Receipt Date: 20170412
  Transmission Date: 20170830
  Serious: No
  Sender: FDA-Public Use
  Company Number: US-009507513-1611USA001945

PATIENT
  Sex: Male

DRUGS (3)
  1. ASMANEX [Suspect]
     Active Substance: MOMETASONE FUROATE
     Indication: PRODUCT USED FOR UNKNOWN INDICATION
     Dosage: 220 MICROGRAM, 60 DOSE
     Route: 055
  2. ASMANEX [Suspect]
     Active Substance: MOMETASONE FUROATE
     Dosage: 220 MICROGRAM, TWICE DALY, 60 DOSE
     Route: 055
  3. ASMANEX [Suspect]
     Active Substance: MOMETASONE FUROATE
     Dosage: 60 DOSE/220 MICROGRAM, BID
     Route: 055

REACTIONS (5)
  - Malaise [Unknown]
  - Product quality issue [Unknown]
  - Drug dose omission [Unknown]
  - Product container issue [Unknown]
  - Intentional product misuse [Unknown]
